FAERS Safety Report 11490655 (Version 3)
Quarter: 2015Q4

REPORT INFORMATION
  Report Type: Spontaneous
  Country: JP (occurrence: JP)
  Receive Date: 20150910
  Receipt Date: 20151007
  Transmission Date: 20160304
  Serious: Yes (Hospitalization)
  Sender: FDA-Public Use
  Company Number: JP-SHIONOGI, INC-2015000959

PATIENT
  Age: 5 Month
  Sex: Female
  Weight: 8.4 kg

DRUGS (5)
  1. CEFOTAXIME SODIUM [Concomitant]
     Active Substance: CEFOTAXIME SODIUM
     Dosage: 0.25 G, TID
     Route: 042
     Dates: start: 20140815, end: 20140819
  2. TEBIPENEM PIVOXIL [Concomitant]
     Active Substance: TEBIPENEM PIVOXIL
     Dosage: 50 MG, BID
     Route: 048
     Dates: start: 20140819, end: 20150906
  3. FINIBAX [Suspect]
     Active Substance: DORIPENEM MONOHYDRATE
     Dosage: 0.25 G, TID
     Route: 042
     Dates: start: 20140919, end: 20140930
  4. FINIBAX [Suspect]
     Active Substance: DORIPENEM MONOHYDRATE
     Indication: PYELONEPHRITIS
     Dosage: 0.25 G, TID
     Route: 042
     Dates: start: 20140819, end: 20140831
  5. CEFDINIR. [Concomitant]
     Active Substance: CEFDINIR
     Dosage: 24 MG, TID
     Route: 048
     Dates: start: 20140907, end: 20140919

REACTIONS (2)
  - Superinfection [Recovered/Resolved]
  - Bacterial pyelonephritis [Recovered/Resolved]

NARRATIVE: CASE EVENT DATE: 20140919
